FAERS Safety Report 7799540-7 (Version None)
Quarter: 2011Q4

REPORT INFORMATION
  Report Type: 
  Country: None (occurrence: None)
  Receive Date: 20111006
  Receipt Date: 20111006
  Transmission Date: 20120403
  Serious: Yes (Hospitalization)
  Sender: FDA-Public Use
  Company Number: None

PATIENT
  Age: 24 Year
  Sex: Male
  Weight: 81.646 kg

DRUGS (1)
  1. HUMIRA [Suspect]
     Indication: BACK PAIN
     Dates: start: 20100601, end: 20110701

REACTIONS (2)
  - DUODENITIS [None]
  - COLITIS [None]
